FAERS Safety Report 6597074-9 (Version None)
Quarter: 2010Q1

REPORT INFORMATION
  Report Type: 
  Country: None (occurrence: None)
  Receive Date: 20100223
  Receipt Date: 20100215
  Transmission Date: 20100710
  Serious: Yes (Other)
  Sender: FDA-Public Use
  Company Number: B0635204A

PATIENT
  Age: 30 Year
  Sex: Female

DRUGS (1)
  1. AUGMENTIN [Suspect]
     Indication: UPPER RESPIRATORY TRACT INFECTION
     Dosage: 1G TWICE PER DAY
     Route: 065
     Dates: start: 20091230, end: 20091230

REACTIONS (7)
  - ABDOMINAL DISCOMFORT [None]
  - DIZZINESS [None]
  - DYSPEPSIA [None]
  - HEADACHE [None]
  - PRURITUS [None]
  - RASH [None]
  - SKIN REACTION [None]
